FAERS Safety Report 8118899 (Version 4)
Quarter: 2012Q4

REPORT INFORMATION
  Report Type: 
  Country: GB (occurrence: GB)
  Receive Date: 20110902
  Receipt Date: 20121004
  Transmission Date: 20130627
  Serious: Yes (Hospitalization, Other)
  Sender: FDA-Public Use
  Company Number: GB-PFIZER INC-2011202764

PATIENT
  Age: 88 Year
  Sex: Female

DRUGS (8)
  1. PIPERACILLIN/TAZOBACTAM STRAGEN [Suspect]
     Indication: LOWER RESPIRATORY TRACT INFECTION
     Dosage: 4.5 g, every 8 hours
     Route: 042
     Dates: start: 20110406, end: 20110411
  2. PIPERACILLIN/TAZOBACTAM STRAGEN [Suspect]
     Dosage: 4.5 g, every 8 hours
     Route: 042
     Dates: start: 20110524, end: 20110525
  3. PIPERACILLIN/TAZOBACTAM STRAGEN [Suspect]
     Dosage: 4.5 g, every 8 hours
     Route: 042
     Dates: start: 20110425, end: 20110428
  4. AMOXICILLIN\CLAVULANATE POTASSIUM [Suspect]
     Indication: GASTROINTESTINAL TUBE INSERTION
     Dosage: 1.2 g, UNK
     Route: 042
     Dates: start: 20110609, end: 20110609
  5. MERONEM [Suspect]
     Indication: LOWER RESPIRATORY TRACT INFECTION
     Dosage: 2 g, every 8 hours
     Route: 042
     Dates: start: 20110514, end: 20110520
  6. MERONEM [Suspect]
     Dosage: 2 g, every 8 hours
     Route: 042
     Dates: start: 20110525, end: 20110530
  7. MERONEM [Suspect]
     Dosage: 2 g, every 8 hours
     Route: 042
     Dates: start: 20110428, end: 20110505
  8. ACETYLSALICYLIC ACID [Concomitant]
     Dosage: 75 mg, 1x/day

REACTIONS (1)
  - Clostridium difficile infection [Recovered/Resolved]
